FAERS Safety Report 9494128 (Version 2)
Quarter: 2013Q3

REPORT INFORMATION
  Report Type: Report from Study
  Country: US (occurrence: US)
  Receive Date: 20130903
  Receipt Date: 20130903
  Transmission Date: 20140515
  Serious: Yes (Other)
  Sender: FDA-Public Use
  Company Number: PHEH2013US014862

PATIENT
  Sex: Female
  Weight: 60.32 kg

DRUGS (16)
  1. GILENYA [Suspect]
     Indication: MULTIPLE SCLEROSIS
     Dosage: 0.5 MG, QD
     Route: 048
     Dates: start: 20130624
  2. GILENYA [Suspect]
     Indication: OFF LABEL USE
  3. TUMS [Concomitant]
     Indication: NAUSEA
  4. MYLANTA [Concomitant]
     Indication: NAUSEA
  5. NEXIUM [Concomitant]
     Indication: GASTROOESOPHAGEAL REFLUX DISEASE
  6. RESTORIL [Concomitant]
     Dosage: 1 DF, QHS, PRN
     Route: 048
  7. XANAX [Concomitant]
     Dosage: 1 DF, PRN
     Route: 048
  8. HYZAAR [Concomitant]
     Dosage: 1 DF, QD
     Route: 048
  9. PREMARIN [Concomitant]
     Dosage: 1 DF, QD
     Route: 048
  10. PREDNISONE [Concomitant]
     Dosage: 1 DF, QW
     Route: 048
  11. CARVEDILOL [Concomitant]
     Dosage: 2 DF, BID
  12. AMLODIPINE BESYLATE [Concomitant]
  13. NEURONTIN [Concomitant]
     Dosage: 2 DF, TID
  14. VITAMIN B 12 [Concomitant]
     Dosage: 1000 MG, QD
  15. CALCIUM CARBONATE AND VITAMIN D [Concomitant]
     Dosage: 1200 MG, TID
  16. CARBAMAZEPINE [Concomitant]
     Dosage: 1 DF, BID

REACTIONS (6)
  - Ulcer [Unknown]
  - Abdominal discomfort [Unknown]
  - Dysphagia [Unknown]
  - Nausea [Unknown]
  - Flatulence [Unknown]
  - Abdominal distension [Unknown]
